FAERS Safety Report 9303537 (Version 2)
Quarter: 2013Q2

REPORT INFORMATION
  Report Type: Spontaneous
  Country: US (occurrence: US)
  Receive Date: 20130522
  Receipt Date: 20130524
  Transmission Date: 20140414
  Serious: Yes (Other)
  Sender: FDA-Public Use
  Company Number: US-ROCHE-1224940

PATIENT
  Age: 50 Year
  Sex: Female
  Weight: 49.5 kg

DRUGS (16)
  1. XOLAIR [Suspect]
     Indication: ASTHMA
     Route: 058
     Dates: start: 20130419, end: 20130514
  2. CLONAZEPAM [Suspect]
     Indication: DEPRESSION
     Route: 048
  3. XOPENEX [Concomitant]
     Indication: ASTHMA
     Dosage: 6.63MG/3 ML
     Route: 065
     Dates: start: 20120322
  4. XOPENEX [Concomitant]
     Route: 050
  5. DULERA [Concomitant]
     Indication: ASTHMA
     Dosage: 200/5 MCG
     Route: 055
  6. FLONASE [Concomitant]
     Indication: RHINITIS ALLERGIC
     Route: 045
  7. PATANASE [Concomitant]
     Indication: RHINITIS ALLERGIC
     Route: 055
     Dates: start: 20110629
  8. CONCERTA [Concomitant]
     Indication: ATTENTION DEFICIT/HYPERACTIVITY DISORDER
     Route: 048
  9. ANTABUSE [Concomitant]
     Indication: DRUG ABUSE
     Route: 048
  10. ANTABUSE [Concomitant]
     Indication: ALCOHOL ABUSE
  11. LUNESTA [Concomitant]
     Indication: SLEEP DISORDER
     Route: 048
  12. BUSPAR [Concomitant]
     Indication: DEPRESSION
     Route: 048
  13. SPIRIVA [Concomitant]
     Indication: ASTHMA
     Route: 055
     Dates: start: 20121024
  14. BENADRYL [Concomitant]
     Indication: HYPERSENSITIVITY
     Route: 048
     Dates: start: 20130325
  15. BENADRYL [Concomitant]
     Route: 065
     Dates: start: 20130403
  16. CLARITIN [Concomitant]
     Indication: RHINITIS ALLERGIC
     Route: 048

REACTIONS (1)
  - Bronchospasm [Recovered/Resolved]
